FAERS Safety Report 4491485-3 (Version None)
Quarter: 2004Q4

REPORT INFORMATION
  Report Type: 
  Country: None (occurrence: None)
  Receive Date: 20041102
  Receipt Date: 20041014
  Transmission Date: 20050328
  Serious: Yes (Other)
  Sender: FDA-Public Use
  Company Number: CAO4001161

PATIENT
  Age: 23 Year
  Sex: Female
  Weight: 53.5 kg

DRUGS (3)
  1. PEPTO-BISMOL, ORIGINAL FLAVOR(BISMUTH SUBSALICYLATE 262 MG, CALCIUM CA [Suspect]
     Indication: DYSPEPSIA
     Dosage: SEE IMAGE
     Route: 048
     Dates: start: 20040731, end: 20040731
  2. PEPTO-BISMOL, ORIGINAL FLAVOR(BISMUTH SUBSALICYLATE 262 MG, CALCIUM CA [Suspect]
     Indication: DYSPEPSIA
     Dosage: SEE IMAGE
     Route: 048
     Dates: start: 20040731, end: 20040731
  3. DEPO-PROVERA SUSPENSION/INJ [Concomitant]

REACTIONS (5)
  - DRUG HYPERSENSITIVITY [None]
  - OROPHARYNGEAL SWELLING [None]
  - OVERDOSE [None]
  - PRURITUS GENERALISED [None]
  - URTICARIA GENERALISED [None]
